FAERS Safety Report 8829954 (Version 2)
Quarter: 2012Q4

REPORT INFORMATION
  Report Type: 
  Country: US (occurrence: US)
  Receive Date: 20121008
  Receipt Date: 20121114
  Transmission Date: 20130627
  Serious: Yes (Other)
  Sender: FDA-Public Use
  Company Number: PHEH2012US019483

PATIENT
  Sex: Female
  Weight: 53.52 kg

DRUGS (1)
  1. GILENYA [Suspect]
     Indication: MULTIPLE SCLEROSIS
     Dosage: 1 DF, QD
     Route: 048
     Dates: start: 20110302

REACTIONS (3)
  - Secondary progressive multiple sclerosis [Unknown]
  - Drug interaction [Unknown]
  - Drug ineffective [Unknown]
